FAERS Safety Report 9262357 (Version 1)
Quarter: 2013Q2

REPORT INFORMATION
  Report Type: Spontaneous
  Country: US (occurrence: None)
  Receive Date: 20130425
  Receipt Date: 20130425
  Transmission Date: 20140414
  Serious: No
  Sender: FDA-Public Use
  Company Number: None

PATIENT
  Age: 38 Year
  Sex: Female

DRUGS (3)
  1. VICTRELIS [Suspect]
     Indication: HEPATITIS C
     Dates: start: 20120902
  2. REBETOL (RIBAVIRIN) [Suspect]
     Indication: HEPATITIS C
     Dates: start: 20120810
  3. PEGASYS (PEGINTERFERON ALFA-2A) [Concomitant]

REACTIONS (4)
  - Palpitations [None]
  - Epistaxis [None]
  - Vomiting [None]
  - Dizziness [None]
